FAERS Safety Report 24180055 (Version 1)
Quarter: 2024Q3

REPORT INFORMATION
  Report Type: Spontaneous
  Country: US (occurrence: None)
  Receive Date: 20240805
  Receipt Date: 20240805
  Transmission Date: 20241017
  Serious: Yes (Other)
  Sender: Public
  Company Number: None

PATIENT
  Age: 42 Year
  Sex: Female
  Weight: 90 kg

DRUGS (19)
  1. PAXLOVID [Suspect]
     Active Substance: NIRMATRELVIR\RITONAVIR
     Indication: SARS-CoV-2 test positive
     Dosage: OTHER QUANTITY : 3 TABLET(S);?FREQUENCY : EVERY 12 HOURS;?
     Route: 048
     Dates: start: 20240730, end: 20240802
  2. METFORMIN [Concomitant]
     Active Substance: METFORMIN HYDROCHLORIDE
  3. PLAQUENIL [Concomitant]
     Active Substance: HYDROXYCHLOROQUINE SULFATE
  4. TACROLIMUS [Concomitant]
     Active Substance: TACROLIMUS
  5. SERTRALINE [Concomitant]
     Active Substance: SERTRALINE HYDROCHLORIDE
  6. LEVOTHYROXINE [Concomitant]
     Active Substance: LEVOTHYROXINE\LEVOTHYROXINE SODIUM
  7. ESTRACE [Concomitant]
     Active Substance: ESTRADIOL
  8. PREDNISONE [Concomitant]
     Active Substance: PREDNISONE
  9. ACAI [Concomitant]
     Active Substance: ACAI
  10. VITAMIN D [Concomitant]
     Active Substance: VITAMIN D NOS
  11. VITAMIN E [Concomitant]
     Active Substance: .ALPHA.-TOCOPHEROL
  12. iron supplement (slow FE) [Concomitant]
  13. NAC [Concomitant]
  14. METANX [Concomitant]
     Active Substance: LEVOMEFOLATE CALCIUM\METHYLCOBALAMIN\PYRIDOXAL PHOSPHATE ANHYDROUS
  15. FISH OIL [Concomitant]
     Active Substance: FISH OIL
  16. PRASTERONE [Concomitant]
     Active Substance: PRASTERONE
  17. COENZYME Q10 [Concomitant]
     Active Substance: DIETARY SUPPLEMENT\UBIDECARENONE
  18. TruNiagen [Concomitant]
  19. R Lipoic Acid [Concomitant]

REACTIONS (19)
  - Diarrhoea [None]
  - Abdominal pain [None]
  - Asthenia [None]
  - Paraesthesia [None]
  - Headache [None]
  - Eye pain [None]
  - Gingival pain [None]
  - Rash [None]
  - Pruritus [None]
  - Fatigue [None]
  - Chromaturia [None]
  - Faeces discoloured [None]
  - Dysgeusia [None]
  - Breath odour [None]
  - Chills [None]
  - Pyrexia [None]
  - Anxiety [None]
  - Insomnia [None]
  - Nervousness [None]

NARRATIVE: CASE EVENT DATE: 20240802
